FAERS Safety Report 6097877-3 (Version None)
Quarter: 2009Q1

REPORT INFORMATION
  Report Type: 
  Country: None (occurrence: None)
  Receive Date: 20090227
  Receipt Date: 20090219
  Transmission Date: 20090719
  Serious: Yes (Other)
  Sender: FDA-Public Use
  Company Number: PHEH2009US01872

PATIENT
  Sex: Female

DRUGS (2)
  1. ZOMETA [Suspect]
     Indication: OSTEOPOROSIS
     Dosage: 4 MG, ONCE OR TWICE/YEAR
     Route: 042
     Dates: start: 20090129
  2. FEMARA [Concomitant]

REACTIONS (3)
  - HEADACHE [None]
  - PAIN [None]
  - SINUSITIS [None]
